FAERS Safety Report 14288170 (Version 2)
Quarter: 2018Q1

REPORT INFORMATION
  Report Type: Spontaneous
  Country: US (occurrence: US)
  Receive Date: 20171214
  Receipt Date: 20180105
  Transmission Date: 20180509
  Serious: No
  Sender: FDA-Public Use
  Company Number: US-TEVA-2017-US-830172

PATIENT
  Sex: Female

DRUGS (5)
  1. CLONAZEPAM. [Suspect]
     Active Substance: CLONAZEPAM
     Indication: GENERALISED ANXIETY DISORDER
     Dates: start: 20171121
  2. CLONAZEPAM. [Suspect]
     Active Substance: CLONAZEPAM
     Indication: RHEUMATOID ARTHRITIS
  3. CLONAZEPAM. [Suspect]
     Active Substance: CLONAZEPAM
     Indication: MUSCLE SPASMS
  4. CLONAZEPAM. [Suspect]
     Active Substance: CLONAZEPAM
     Indication: INSOMNIA
  5. CLONAZEPAM. [Suspect]
     Active Substance: CLONAZEPAM
     Indication: MULTIPLE SCLEROSIS

REACTIONS (4)
  - Pain [Unknown]
  - Product use in unapproved indication [Unknown]
  - Muscle spasms [Unknown]
  - Drug ineffective [Unknown]

NARRATIVE: CASE EVENT DATE: 201711
